FAERS Safety Report 19831615 (Version 1)
Quarter: 2021Q3

REPORT INFORMATION
  Report Type: Other
  Country: US (occurrence: US)
  Receive Date: 20210915
  Receipt Date: 20210915
  Transmission Date: 20211014
  Serious: No
  Sender: FDA-Public Use
  Company Number: US-NEUROCRINE BIOSCIENCES INC.-2021NBI05011

PATIENT

DRUGS (4)
  1. BUSPIRON [BUSPIRONE HYDROCHLORIDE] [Concomitant]
     Active Substance: BUSPIRONE HYDROCHLORIDE
     Indication: BIPOLAR I DISORDER
     Dosage: 10 MILLIGRAM, BID
     Route: 048
  2. OLANZAPINE. [Concomitant]
     Active Substance: OLANZAPINE
     Indication: BIPOLAR I DISORDER
     Dosage: 20 MILLIGRAM, QHS
     Route: 048
  3. INGREZZA [Suspect]
     Active Substance: VALBENAZINE
     Indication: TARDIVE DYSKINESIA
     Dosage: 40 MILLIGRAM, QD
     Route: 048
     Dates: start: 20210729, end: 20210826
  4. DEPAKOTE [Concomitant]
     Active Substance: DIVALPROEX SODIUM
     Indication: SCHIZOPHRENIA
     Dosage: 125 MILLIGRAM, QID
     Route: 048

REACTIONS (1)
  - Anxiety [Recovered/Resolved]

NARRATIVE: CASE EVENT DATE: 20210825
